FAERS Safety Report 12244292 (Version 1)
Quarter: 2016Q2

REPORT INFORMATION
  Report Type: Spontaneous
  Country: GB (occurrence: GB)
  Receive Date: 20160407
  Receipt Date: 20160407
  Transmission Date: 20160815
  Serious: Yes (Hospitalization)
  Sender: FDA-Public Use
  Company Number: GB-009507513-1604GBR002483

PATIENT
  Age: 89 Year

DRUGS (9)
  1. OXYBUTYNIN [Concomitant]
     Active Substance: OXYBUTYNIN
     Dosage: 2.5 MG, BID
  2. OMEPRAZOLE. [Concomitant]
     Active Substance: OMEPRAZOLE
     Dosage: 20 MG, BID
  3. FUROSEMIDE. [Concomitant]
     Active Substance: FUROSEMIDE
     Dosage: 40 MG, QD
  4. ACETAMINOPHEN. [Concomitant]
     Active Substance: ACETAMINOPHEN
     Dosage: 1G, TID
  5. SIMVASTATIN. [Suspect]
     Active Substance: SIMVASTATIN
     Dosage: IN THE EVENING
     Route: 048
  6. ASPIRIN. [Concomitant]
     Active Substance: ASPIRIN
     Dosage: 75MG, QD
  7. BISOPROLOL [Concomitant]
     Active Substance: BISOPROLOL
     Dosage: 2.5 MG, QD
  8. CARBOMER [Concomitant]
     Active Substance: CARBOMER
     Dosage: 0.2%, IN THE EVENING
  9. NITRAZEPAM [Concomitant]
     Active Substance: NITRAZEPAM
     Dosage: 10ML, IN THE EVENING

REACTIONS (4)
  - Hemiplegia [Unknown]
  - Facial paralysis [Unknown]
  - Dysarthria [Unknown]
  - Liver function test increased [Recovering/Resolving]
